FAERS Safety Report 15760035 (Version 4)
Quarter: 2019Q1

REPORT INFORMATION
  Report Type: Spontaneous
  Country: GB (occurrence: GB)
  Receive Date: 20181226
  Receipt Date: 20190307
  Transmission Date: 20190417
  Serious: Yes (Death, Hospitalization, Other)
  Sender: FDA-Public Use
  Company Number: PHHY2018GB195247

PATIENT
  Sex: Female

DRUGS (5)
  1. METHOTREXATE. [Interacting]
     Active Substance: METHOTREXATE
     Dosage: 10 MG, QD
     Route: 048
     Dates: start: 20000407
  2. IBUPROFEN. [Interacting]
     Active Substance: IBUPROFEN
     Indication: PRODUCT USED FOR UNKNOWN INDICATION
     Dosage: UNK
     Route: 065
  3. METHOTREXATE. [Suspect]
     Active Substance: METHOTREXATE
     Indication: RHEUMATOID ARTHRITIS
     Dosage: 10 MG, QW
     Route: 048
     Dates: start: 199701
  4. METHOTREXATE. [Interacting]
     Active Substance: METHOTREXATE
     Dosage: 2.5 DF, (DURING HER 8 DAY ADMISSION)
     Route: 048
  5. METHOTREXATE. [Interacting]
     Active Substance: METHOTREXATE
     Dosage: 17.5 MG, QW
     Route: 048
     Dates: start: 199701

REACTIONS (16)
  - Drug interaction [Fatal]
  - Phlebitis [Fatal]
  - Condition aggravated [Fatal]
  - Pancytopenia [Fatal]
  - Mucosal inflammation [Fatal]
  - Labelled drug-drug interaction medication error [Fatal]
  - Product prescribing error [Fatal]
  - Rash [Fatal]
  - Intercepted product administration error [Fatal]
  - Gastrointestinal haemorrhage [Fatal]
  - Inflammation [Fatal]
  - Overdose [Fatal]
  - Toxicity to various agents [Fatal]
  - Inappropriate schedule of product administration [Fatal]
  - Product dispensing error [Fatal]
  - Arthralgia [Fatal]

NARRATIVE: CASE EVENT DATE: 20000401
